FAERS Safety Report 21004788 (Version 3)
Quarter: 2022Q3

REPORT INFORMATION
  Report Type: Spontaneous
  Country: FR (occurrence: FR)
  Receive Date: 20220624
  Receipt Date: 20220802
  Transmission Date: 20221026
  Serious: Yes (Hospitalization, Other)
  Sender: FDA-Public Use
  Company Number: FR-NOVARTISPH-NVSC2022FR141863

PATIENT
  Age: 47 Year
  Sex: Male

DRUGS (5)
  1. ALLOPURINOL [Interacting]
     Active Substance: ALLOPURINOL
     Indication: Gout
     Dosage: UNK
     Route: 065
     Dates: start: 202106, end: 202107
  2. COLCHICINE [Concomitant]
     Active Substance: COLCHICINE
     Indication: Gout
     Dosage: UNK
     Route: 065
     Dates: start: 202106
  3. KETOPROFEN [Concomitant]
     Active Substance: KETOPROFEN
     Indication: Gout
     Dosage: UNK
     Route: 065
     Dates: start: 202106
  4. OMEPRAZOLE [Concomitant]
     Active Substance: OMEPRAZOLE
     Indication: Gout
     Dosage: UNK
     Route: 065
     Dates: start: 202106
  5. ACETAMINOPHEN [Concomitant]
     Active Substance: ACETAMINOPHEN
     Indication: Gout
     Dosage: UNK
     Route: 065
     Dates: start: 202106

REACTIONS (4)
  - Renal vasculitis [Recovering/Resolving]
  - Acute kidney injury [Recovering/Resolving]
  - Drug-genetic interaction [Unknown]
  - Drug hypersensitivity [Unknown]
